FAERS Safety Report 8978994 (Version 1)
Quarter: 2012Q4

REPORT INFORMATION
  Report Type: 
  Country: US (occurrence: US)
  Receive Date: 20121221
  Receipt Date: 20121221
  Transmission Date: 20130627
  Serious: No
  Sender: FDA-Public Use
  Company Number: US-009507513-1212USA007000

PATIENT
  Age: 53 Year
  Sex: Male

DRUGS (7)
  1. VICTRELIS [Suspect]
     Indication: HEPATITIS C
     Dosage: 4 DF every 8 hours
     Route: 048
     Dates: start: 201209, end: 20121205
  2. CALAMINE [Concomitant]
  3. DOXEPIN HYDROCHLORIDE [Concomitant]
  4. FLUNISOLIDE [Concomitant]
  5. MECLIZINE [Concomitant]
  6. MAGNESIUM OXIDE [Concomitant]
  7. TERAZOSIN HYDROCHLORIDE [Concomitant]

REACTIONS (2)
  - Haemoglobin decreased [Recovering/Resolving]
  - Neutrophil count decreased [Recovering/Resolving]
